FAERS Safety Report 8542471-5 (Version None)
Quarter: 2012Q3

REPORT INFORMATION
  Report Type: 
  Country: None (occurrence: None)
  Receive Date: 20120726
  Receipt Date: 20110823
  Transmission Date: 20120928
  Serious: Yes (Other)
  Sender: FDA-Public Use
  Company Number: US-ASTRAZENECA-2009SE19116

PATIENT
  Age: 148 Month
  Sex: Male
  Weight: 117 kg

DRUGS (2)
  1. LEVOXYL [Concomitant]
     Route: 048
     Dates: start: 20060106
  2. SEROQUEL [Suspect]
     Route: 048

REACTIONS (5)
  - HYPERGLYCAEMIA [None]
  - DIABETES MELLITUS [None]
  - DIABETIC COMA [None]
  - PANCREATITIS [None]
  - DIABETIC KETOACIDOSIS [None]
